FAERS Safety Report 8818140 (Version 2)
Quarter: 2012Q4

REPORT INFORMATION
  Report Type: 
  Country: US (occurrence: US)
  Receive Date: 20121001
  Receipt Date: 20121012
  Transmission Date: 20130627
  Serious: No
  Sender: FDA-Public Use
  Company Number: US-VERTEX PHARMACEUTICAL INC.-2012-021801

PATIENT
  Age: 59 Year
  Sex: Female
  Weight: 89 kg

DRUGS (7)
  1. VX-950 [Suspect]
     Indication: HEPATITIS C
     Dosage: 750 mg, tid
     Route: 048
     Dates: start: 20120910
  2. RIBAVIRIN [Suspect]
     Indication: HEPATITIS C
     Dosage: 600 mg, bid
     Route: 048
     Dates: start: 20120910
  3. PEGASYS [Suspect]
     Indication: HEPATITIS C
     Dosage: 180 ?g, UNK
     Dates: start: 20120910
  4. CENESTIN [Concomitant]
     Dosage: .625 mg, UNK
  5. PRILOSEC                           /00661201/ [Concomitant]
     Dosage: 20 mg, UNK
  6. PAXIL [Concomitant]
     Dosage: 10 mg, UNK
  7. ADVIL                              /00044201/ [Concomitant]
     Dosage: 200 mg, UNK

REACTIONS (4)
  - Fatigue [Unknown]
  - Anorectal discomfort [Not Recovered/Not Resolved]
  - Anal pruritus [Unknown]
  - Nausea [Not Recovered/Not Resolved]
